APPROVED DRUG PRODUCT: DIAZOXIDE
Active Ingredient: DIAZOXIDE
Strength: 50MG/ML
Dosage Form/Route: SUSPENSION;ORAL
Application: A211050 | Product #001 | TE Code: AB
Applicant: E5 PHARMA INC
Approved: Dec 20, 2019 | RLD: No | RS: No | Type: RX